FAERS Safety Report 8464875-1 (Version None)
Quarter: 2012Q2

REPORT INFORMATION
  Report Type: 
  Country: None (occurrence: None)
  Receive Date: 20120626
  Receipt Date: 20120621
  Transmission Date: 20120825
  Serious: Yes (Life-Threatening, Hospitalization)
  Sender: FDA-Public Use
  Company Number: US-ELI_LILLY_AND_COMPANY-US201206007653

PATIENT
  Age: 75 Year
  Sex: Male

DRUGS (16)
  1. LIPITOR [Concomitant]
     Dosage: UNK, UNKNOWN
     Route: 065
  2. EFFIENT [Suspect]
     Indication: STENT PLACEMENT
     Dosage: 10 MG, QD
     Route: 065
     Dates: start: 20120617, end: 20120620
  3. LISINOPRIL [Concomitant]
     Dosage: UNK, UNKNOWN
     Route: 065
  4. HEPARIN [Concomitant]
     Dosage: UNK, UNKNOWN
     Route: 065
  5. METOPROLOL [Concomitant]
     Dosage: UNK, UNKNOWN
     Route: 065
  6. QVAR 40 [Concomitant]
     Dosage: UNK, UNKNOWN
     Route: 065
  7. ATROVENT [Concomitant]
     Dosage: UNK, UNKNOWN
     Route: 065
  8. INTEGRILIN [Concomitant]
     Dosage: UNK, UNKNOWN
     Route: 065
  9. LEVOTHYROXINE [Concomitant]
     Dosage: UNK, UNKNOWN
     Route: 065
  10. PEPCID [Concomitant]
     Dosage: UNK, UNKNOWN
     Route: 065
  11. PLAVIX [Concomitant]
     Dosage: UNK, UNKNOWN
     Route: 065
  12. ASPIRIN [Concomitant]
     Dosage: UNK, UNKNOWN
     Route: 065
  13. PERCOCET [Concomitant]
     Dosage: UNK, UNKNOWN
     Route: 065
  14. AMLODIPINE [Concomitant]
     Dosage: UNK, UNKNOWN
     Route: 065
  15. IMDUR [Concomitant]
     Dosage: UNK, UNKNOWN
     Route: 065
  16. SEREVENT [Concomitant]
     Dosage: UNK, UNKNOWN
     Route: 065

REACTIONS (3)
  - DECREASED APPETITE [None]
  - HAEMORRHAGE INTRACRANIAL [None]
  - CONSTIPATION [None]
